FAERS Safety Report 24967773 (Version 1)
Quarter: 2025Q1

REPORT INFORMATION
  Report Type: Spontaneous
  Country: US (occurrence: US)
  Receive Date: 20250214
  Receipt Date: 20250214
  Transmission Date: 20250408
  Serious: No
  Sender: NOVARTIS
  Company Number: US-002147023-NVSC2025US022957

PATIENT
  Sex: Female

DRUGS (2)
  1. TYKERB [Suspect]
     Active Substance: LAPATINIB DITOSYLATE
     Indication: Breast cancer female
     Dosage: 750 MG, QD
     Route: 048
     Dates: start: 202302
  2. LAPATINIB [Suspect]
     Active Substance: LAPATINIB
     Indication: Breast cancer female
     Route: 065

REACTIONS (1)
  - Gastrointestinal disorder [Unknown]
